FAERS Safety Report 6094606-4 (Version None)
Quarter: 2009Q1

REPORT INFORMATION
  Report Type: 
  Country: None (occurrence: None)
  Receive Date: 20090226
  Receipt Date: 20090218
  Transmission Date: 20090719
  Serious: Yes (Hospitalization)
  Sender: FDA-Public Use
  Company Number: PHHY2009JP05777

PATIENT
  Age: 70 Year
  Sex: Male

DRUGS (15)
  1. TEGRETOL [Suspect]
     Indication: POST HERPETIC NEURALGIA
     Dosage: 200 MG, BID
     Route: 048
     Dates: start: 20080828, end: 20080910
  2. MUCOSTA [Concomitant]
     Route: 048
  3. LONGES [Concomitant]
  4. AMLODIN [Concomitant]
     Route: 048
  5. GASTER D [Concomitant]
     Route: 048
  6. ASPIRIN [Concomitant]
     Route: 048
  7. PANALDINE [Concomitant]
     Route: 048
  8. WARFARIN POTASSIUM [Concomitant]
     Route: 048
  9. BLOPRESS [Concomitant]
     Route: 048
  10. MEVALOTIN [Concomitant]
     Route: 048
  11. SOLANAX [Concomitant]
     Route: 048
  12. SALOBEL [Concomitant]
     Route: 048
  13. SUNRYTHM [Concomitant]
  14. PROHEPARUM [Concomitant]
     Route: 048
  15. ZYRTEC [Concomitant]
     Route: 048

REACTIONS (7)
  - CONSTIPATION [None]
  - ERYTHEMA [None]
  - HAEMORRHAGE SUBCUTANEOUS [None]
  - ILEUS [None]
  - PLATELET COUNT DECREASED [None]
  - PLATELET TRANSFUSION [None]
  - VOMITING [None]
